FAERS Safety Report 25387032 (Version 1)
Quarter: 2025Q2

REPORT INFORMATION
  Report Type: Spontaneous
  Country: US (occurrence: US)
  Receive Date: 20250602
  Receipt Date: 20250602
  Transmission Date: 20250717
  Serious: No
  Sender: MERCK SHARP & DOHME LLC
  Company Number: US-009507513-2288760

PATIENT
  Sex: Female

DRUGS (2)
  1. SUGAMMADEX [Suspect]
     Active Substance: SUGAMMADEX
  2. ZOFRAN [Concomitant]
     Active Substance: ONDANSETRON HYDROCHLORIDE

REACTIONS (7)
  - Chest discomfort [Unknown]
  - Back pain [Unknown]
  - Infusion site bruising [Unknown]
  - Pain in extremity [Unknown]
  - Infusion site phlebitis [Unknown]
  - Peripheral vein occlusion [Unknown]
  - Labelled drug-drug interaction issue [Unknown]
